FAERS Safety Report 11626536 (Version 10)
Quarter: 2016Q4

REPORT INFORMATION
  Report Type: Report from Study
  Country: BR (occurrence: BR)
  Receive Date: 20151013
  Receipt Date: 20161013
  Transmission Date: 20170206
  Serious: Yes (Hospitalization, Other)
  Sender: FDA-Public Use
  Company Number: PHHY2015BR122562

PATIENT
  Sex: Female
  Weight: 55 kg

DRUGS (9)
  1. EXJADE [Suspect]
     Active Substance: DEFERASIROX
     Dosage: 10 MG/KG, QD (1 DF: 500 MG)
     Route: 048
  2. RISPERIDONA [Concomitant]
     Active Substance: RISPERIDONE
     Indication: BIPOLAR DISORDER
     Dosage: 10 DROPS A DAY
     Route: 048
  3. EXJADE [Suspect]
     Active Substance: DEFERASIROX
     Indication: MYELODYSPLASTIC SYNDROME
     Dosage: 20 MG/KG, QD (2 DF 1000 MG)
     Route: 048
     Dates: start: 2015
  4. EXJADE [Suspect]
     Active Substance: DEFERASIROX
     Indication: APLASTIC ANAEMIA
     Dosage: 20 MG/KG, QD (2 DF 1000 MG)
     Route: 048
     Dates: start: 201510
  5. REGULAR INSULIN NOVO NORDISK [Concomitant]
     Active Substance: INSULIN HUMAN
     Indication: DIABETES MELLITUS
     Dosage: DOSE VARIES ACCORDING TO THE GLYCEMIA LEVEL
     Route: 065
  6. DONEPEZIL. [Concomitant]
     Active Substance: DONEPEZIL
     Indication: DEMENTIA ALZHEIMER^S TYPE
     Dosage: 1 DF, QD (AT NIGHT)
     Route: 048
  7. EXJADE [Suspect]
     Active Substance: DEFERASIROX
     Dosage: 20 MG/KG, QD (2 DF 1000 MG)
     Route: 048
     Dates: start: 201511
  8. NPH INSULIN [Concomitant]
     Active Substance: INSULIN BEEF
     Indication: DIABETES MELLITUS
     Dosage: DOSE VARIES ACCORDING TO THE GLYCEMIA LEVEL
     Route: 065
  9. EXJADE [Suspect]
     Active Substance: DEFERASIROX
     Dosage: 20 MG/KG, QD (2 DF: 1000 MG)
     Route: 048
     Dates: end: 201605

REACTIONS (50)
  - Skin discolouration [Not Recovered/Not Resolved]
  - Dementia Alzheimer^s type [Unknown]
  - Urine analysis abnormal [Recovered/Resolved]
  - Depressed mood [Unknown]
  - Serum ferritin increased [Recovering/Resolving]
  - Speech disorder [Not Recovered/Not Resolved]
  - Dry skin [Unknown]
  - Arthralgia [Recovering/Resolving]
  - Urinary tract infection [Recovered/Resolved]
  - Skin discolouration [Recovered/Resolved]
  - Nausea [Unknown]
  - Sneezing [Recovered/Resolved]
  - Dysphonia [Recovered/Resolved]
  - Pollakiuria [Recovering/Resolving]
  - Asthenia [Recovered/Resolved]
  - Platelet count decreased [Recovering/Resolving]
  - Dengue fever [Unknown]
  - Rash generalised [Unknown]
  - Pain in extremity [Recovering/Resolving]
  - Sinusitis [Recovered/Resolved]
  - Vomiting [Recovered/Resolved]
  - Gait disturbance [Not Recovered/Not Resolved]
  - Weight decreased [Recovered/Resolved]
  - Blood glucose decreased [Recovered/Resolved]
  - Skin mass [Unknown]
  - Diarrhoea [Recovered/Resolved]
  - Pain [Recovered/Resolved]
  - Pyrexia [Recovered/Resolved]
  - Memory impairment [Not Recovered/Not Resolved]
  - Concomitant disease aggravated [Unknown]
  - Malaise [Recovered/Resolved]
  - Renal disorder [Recovered/Resolved]
  - Dysuria [Recovered/Resolved]
  - Oedema peripheral [Recovered/Resolved]
  - Depression [Unknown]
  - Fear [Not Recovered/Not Resolved]
  - Impaired work ability [Unknown]
  - Anxiety [Unknown]
  - Weight increased [Not Recovered/Not Resolved]
  - Feeding disorder [Recovering/Resolving]
  - Faeces discoloured [Unknown]
  - Stubbornness [Unknown]
  - Hypersensitivity [Unknown]
  - Gastrointestinal disorder [Unknown]
  - Diet refusal [Not Recovered/Not Resolved]
  - Pruritus [Not Recovered/Not Resolved]
  - Nasopharyngitis [Recovered/Resolved]
  - Cough [Recovered/Resolved]
  - Headache [Recovered/Resolved]
  - Decreased appetite [Not Recovered/Not Resolved]

NARRATIVE: CASE EVENT DATE: 2015
